FAERS Safety Report 24635978 (Version 1)
Quarter: 2024Q4

REPORT INFORMATION
  Report Type: Spontaneous
  Country: US (occurrence: US)
  Receive Date: 20241119
  Receipt Date: 20241119
  Transmission Date: 20250114
  Serious: No
  Sender: CATALYST PHARMA
  Company Number: US-CATALYST PHARMACEUTICALS-US-CATA-24-01217

PATIENT
  Sex: Male
  Weight: 20.862 kg

DRUGS (3)
  1. AGAMREE [Suspect]
     Active Substance: VAMOROLONE
     Indication: Duchenne muscular dystrophy
     Dosage: 3 ML ONCE DAILY
     Route: 048
     Dates: start: 20240330, end: 202410
  2. AGAMREE [Suspect]
     Active Substance: VAMOROLONE
     Dosage: 2 ML ONCE DAILY
     Route: 048
     Dates: start: 202410
  3. FAMOTIDINE [Concomitant]
     Active Substance: FAMOTIDINE
     Indication: Gastrointestinal disorder prophylaxis
     Dosage: 1 ML TWICE DAILY
     Route: 048

REACTIONS (2)
  - Insomnia [Recovering/Resolving]
  - Condition aggravated [Recovering/Resolving]

NARRATIVE: CASE EVENT DATE: 20240101
